FAERS Safety Report 13648850 (Version 3)
Quarter: 2018Q1

REPORT INFORMATION
  Report Type: Spontaneous
  Country: US (occurrence: US)
  Receive Date: 20170613
  Receipt Date: 20180125
  Transmission Date: 20180508
  Serious: Yes (Other)
  Sender: FDA-Public Use
  Company Number: US-009507513-1706USA005514

PATIENT
  Sex: Female

DRUGS (1)
  1. KEYTRUDA [Suspect]
     Active Substance: PEMBROLIZUMAB
     Indication: NON-SMALL CELL LUNG CANCER
     Dosage: 2-3 KEYTRUDA INFUSIONS
     Route: 042

REACTIONS (3)
  - Carcinoid tumour [Recovering/Resolving]
  - Burning sensation [Unknown]
  - Malignant neoplasm progression [Unknown]
